FAERS Safety Report 23264282 (Version 1)
Quarter: 2023Q4

REPORT INFORMATION
  Report Type: Spontaneous
  Country: CA (occurrence: CA)
  Receive Date: 20231205
  Receipt Date: 20231205
  Transmission Date: 20240110
  Serious: Yes (Other)
  Sender: FDA-Public Use
  Company Number: CA-FreseniusKabi-FK202319387

PATIENT

DRUGS (1)
  1. PROPOFOL [Suspect]
     Active Substance: PROPOFOL
     Indication: Product used for unknown indication
     Dosage: NOT SPECIFIED

REACTIONS (4)
  - Agitation [Unknown]
  - Device issue [Unknown]
  - Underdose [Unknown]
  - Vein disorder [Unknown]
